FAERS Safety Report 8264548-4 (Version None)
Quarter: 2012Q2

REPORT INFORMATION
  Report Type: 
  Country: None (occurrence: None)
  Receive Date: 20120404
  Receipt Date: 20120328
  Transmission Date: 20120825
  Serious: Yes (Other)
  Sender: FDA-Public Use
  Company Number: 2011SP054470

PATIENT
  Age: 50 Year
  Sex: Male
  Weight: 73 kg

DRUGS (6)
  1. MIRTAZAPINE [Suspect]
     Indication: SLEEP DISORDER
     Dosage: 30 MG;QD; 1 DF;QD;
     Dates: start: 20091201
  2. MIRTAZAPINE [Suspect]
     Indication: DEPRESSION
     Dosage: 30 MG;QD; 1 DF;QD;
     Dates: start: 20091201
  3. MIRTAZAPINE [Suspect]
     Indication: SLEEP DISORDER
     Dosage: 30 MG;QD; 1 DF;QD;
     Dates: start: 20030401, end: 20091201
  4. MIRTAZAPINE [Suspect]
     Indication: DEPRESSION
     Dosage: 30 MG;QD; 1 DF;QD;
     Dates: start: 20030401, end: 20091201
  5. NORDAZ [Concomitant]
  6. CLONAZEPAM [Concomitant]

REACTIONS (5)
  - DRUG HYPERSENSITIVITY [None]
  - HAEMATOMA [None]
  - TINNITUS [None]
  - LIBIDO DECREASED [None]
  - PRESBYACUSIS [None]
